FAERS Safety Report 25335642 (Version 1)
Quarter: 2025Q2

REPORT INFORMATION
  Report Type: Spontaneous
  Country: JP (occurrence: JP)
  Receive Date: 20250520
  Receipt Date: 20250520
  Transmission Date: 20250716
  Serious: Yes (Other)
  Sender: MYLAN
  Company Number: JP-MYE-2025M1041793AA

PATIENT
  Age: 47 Year
  Sex: Female

DRUGS (8)
  1. CYCLOSPORINE [Suspect]
     Active Substance: CYCLOSPORINE
     Indication: Immunosuppressant drug therapy
  2. CYCLOSPORINE [Suspect]
     Active Substance: CYCLOSPORINE
     Indication: Prophylaxis against transplant rejection
  3. RITUXIMAB [Suspect]
     Active Substance: RITUXIMAB
     Indication: Immunosuppressant drug therapy
  4. RITUXIMAB [Suspect]
     Active Substance: RITUXIMAB
     Indication: Prophylaxis against transplant rejection
  5. ALPROSTADIL [Suspect]
     Active Substance: ALPROSTADIL
     Indication: Immunosuppressant drug therapy
  6. ALPROSTADIL [Suspect]
     Active Substance: ALPROSTADIL
     Indication: Prophylaxis against transplant rejection
  7. GABEXATE MESYLATE [Suspect]
     Active Substance: GABEXATE MESYLATE
     Indication: Immunosuppressant drug therapy
  8. GABEXATE MESYLATE [Suspect]
     Active Substance: GABEXATE MESYLATE
     Indication: Prophylaxis against transplant rejection

REACTIONS (2)
  - Encephalopathy [Unknown]
  - Drug ineffective [Unknown]
